FAERS Safety Report 10802752 (Version 1)
Quarter: 2015Q1

REPORT INFORMATION
  Report Type: Spontaneous
  Country: GR (occurrence: GR)
  Receive Date: 20150217
  Receipt Date: 20150217
  Transmission Date: 20150721
  Serious: Yes (Hospitalization, Other)
  Sender: FDA-Public Use
  Company Number: GR-GILEAD-2014-0127954

PATIENT
  Age: 32 Year
  Sex: Male
  Weight: 80 kg

DRUGS (9)
  1. NOZINAN                            /00038601/ [Concomitant]
     Active Substance: LEVOMEPROMAZINE
     Dosage: 2 DF, BID
     Route: 048
     Dates: start: 20141210
  2. AVELOX [Concomitant]
     Active Substance: MOXIFLOXACIN HYDROCHLORIDE
     Dosage: 1 DF, QD
     Route: 048
     Dates: start: 20141210, end: 20141213
  3. AKINETON [Concomitant]
     Active Substance: BIPERIDEN HYDROCHLORIDE
     Dosage: 2 DF, BID
     Route: 048
     Dates: start: 20141210, end: 20141216
  4. AUGMENTIN [Concomitant]
     Active Substance: AMOXICILLIN\CLAVULANATE POTASSIUM
     Dosage: 1 DF, TID
     Route: 048
     Dates: start: 20141213, end: 20141216
  5. STELAZINE [Concomitant]
     Active Substance: TRIFLUOPERAZINE HYDROCHLORIDE
     Dosage: 1 DF, BID
     Route: 048
     Dates: start: 20141210, end: 20141216
  6. EVIPLERA [Suspect]
     Active Substance: EMTRICITABINE\RILPIVIRINE\TENOFOVIR DISOPROXIL FUMARATE
     Indication: HIV INFECTION
     Dosage: 6 DF, ONCE
     Route: 048
  7. EVIPLERA [Suspect]
     Active Substance: EMTRICITABINE\RILPIVIRINE\TENOFOVIR DISOPROXIL FUMARATE
     Dosage: 1 DF, QD
     Route: 048
     Dates: start: 20141210
  8. ALPRAZOLAM. [Concomitant]
     Active Substance: ALPRAZOLAM
     Dosage: 4 DF, QD
     Route: 048
     Dates: start: 20141210, end: 20141216
  9. VULBEGAL [Concomitant]
     Dosage: 2 DF, QD
     Route: 048
     Dates: start: 20141210, end: 20141216

REACTIONS (2)
  - Overdose [Recovered/Resolved]
  - Suicide attempt [Recovered/Resolved]
